FAERS Safety Report 17756395 (Version 1)
Quarter: 2020Q2

REPORT INFORMATION
  Report Type: Spontaneous
  Country: FR (occurrence: FR)
  Receive Date: 20200507
  Receipt Date: 20200507
  Transmission Date: 20200714
  Serious: Yes (Hospitalization)
  Sender: FDA-Public Use
  Company Number: FR-CADILA HEALTHCARE LIMITED-FR-ZYDUS-022405

PATIENT

DRUGS (2)
  1. PREVISCAN (FRANCE) [Suspect]
     Active Substance: FLUINDIONE
     Indication: ATRIAL FIBRILLATION
     Dosage: 20 MILLIGRAM,(INTERVAL :1 DAYS)
     Route: 048
     Dates: start: 20171025, end: 20180125
  2. PAROXETINE. [Suspect]
     Active Substance: PAROXETINE
     Indication: PRODUCT USED FOR UNKNOWN INDICATION
     Dosage: 20 MILLIGRAM,(INTERVAL :1 DAYS)
     Route: 048
     Dates: start: 20171227, end: 20180127

REACTIONS (1)
  - International normalised ratio increased [Recovering/Resolving]

NARRATIVE: CASE EVENT DATE: 20180125
